FAERS Safety Report 10947983 (Version 1)
Quarter: 2015Q1

REPORT INFORMATION
  Report Type: Spontaneous
  Country: US (occurrence: US)
  Receive Date: 20150324
  Receipt Date: 20150324
  Transmission Date: 20150721
  Serious: Yes (Hospitalization)
  Sender: FDA-Public Use
  Company Number: US-AMGEN-USASP2015026744

PATIENT
  Age: 60 Year
  Sex: Male

DRUGS (1)
  1. ENBREL [Suspect]
     Active Substance: ETANERCEPT
     Indication: RHEUMATOID ARTHRITIS
     Dosage: 50 MG, QWK
     Route: 065
     Dates: start: 20100901

REACTIONS (6)
  - Back pain [Recovered/Resolved]
  - Hypoaesthesia [Recovered/Resolved]
  - Neuralgia [Recovered/Resolved]
  - Surgery [Recovered/Resolved]
  - Intervertebral disc disorder [Recovered/Resolved]
  - Spinal disorder [Recovered/Resolved]

NARRATIVE: CASE EVENT DATE: 2014
